FAERS Safety Report 7033715-X (Version None)
Quarter: 2010Q4

REPORT INFORMATION
  Report Type: 
  Country: None (occurrence: None)
  Receive Date: 20101007
  Receipt Date: 20101001
  Transmission Date: 20110411
  Serious: Yes (Other)
  Sender: FDA-Public Use
  Company Number: BR-SANOFI-AVENTIS-2010SA059362

PATIENT
  Sex: Female
  Weight: 71 kg

DRUGS (6)
  1. LANTUS [Suspect]
     Indication: TYPE 2 DIABETES MELLITUS
     Route: 058
     Dates: start: 20070101
  2. ATORVASTATIN CALCIUM [Concomitant]
     Route: 048
     Dates: start: 20070101
  3. ALL OTHER THERAPEUTIC PRODUCTS [Concomitant]
     Route: 030
     Dates: start: 20090101
  4. CALCITRIOL [Concomitant]
     Indication: BONE DISORDER
     Route: 048
     Dates: start: 20070101
  5. ENALAPRIL MALEATE [Concomitant]
     Indication: HYPERTENSION
     Route: 048
     Dates: start: 20070101
  6. FUROSEMIDE [Concomitant]
     Indication: DIURETIC THERAPY
     Route: 048
     Dates: start: 20070101

REACTIONS (6)
  - CATARACT [None]
  - CONDITION AGGRAVATED [None]
  - FUNGAL INFECTION [None]
  - OPTIC NEUROPATHY [None]
  - RENAL IMPAIRMENT [None]
  - RETINAL DETACHMENT [None]
